FAERS Safety Report 10194927 (Version 1)
Quarter: 2014Q2

REPORT INFORMATION
  Report Type: Spontaneous
  Country: US (occurrence: US)
  Receive Date: 20140526
  Receipt Date: 20140526
  Transmission Date: 20141212
  Serious: No
  Sender: FDA-Public Use
  Company Number: US-PFIZER INC-2014140626

PATIENT
  Age: 55 Year
  Sex: Male
  Weight: 149.66 kg

DRUGS (9)
  1. NEURONTIN [Suspect]
     Indication: PAIN
     Dosage: 100 MG, 3X/DAY
     Route: 048
     Dates: start: 2010, end: 2010
  2. NEURONTIN [Suspect]
     Indication: NEUROPATHY PERIPHERAL
  3. NEURONTIN [Suspect]
     Indication: FIBROMYALGIA
  4. TRAMADOL [Concomitant]
     Dosage: 50 MG, 4X/DAY
  5. PROPRANOLOL [Concomitant]
     Dosage: 40 MG, 2X/DAY
  6. HYDROCHLOROTHIAZIDE [Concomitant]
     Dosage: 25 MG, 2X/DAY
  7. ALLOPURINOL [Concomitant]
     Dosage: 100 MG, 1X/DAY
  8. ZANTAC [Concomitant]
     Dosage: 150 MG, 2X/DAY
  9. IRON [Concomitant]
     Indication: ANAEMIA
     Dosage: 27 MG, 1X/DAY

REACTIONS (1)
  - Nausea [Unknown]
